FAERS Safety Report 4802810-5 (Version None)
Quarter: 2005Q4

REPORT INFORMATION
  Report Type: 
  Country: None (occurrence: None)
  Receive Date: 20051013
  Receipt Date: 20050922
  Transmission Date: 20060501
  Serious: Yes (Hospitalization)
  Sender: FDA-Public Use
  Company Number: EWC050945673

PATIENT
  Sex: Female

DRUGS (4)
  1. CYMBALTA [Suspect]
     Indication: DEPRESSIVE SYMPTOM
     Dosage: 60 MG DAY
     Dates: start: 20050601
  2. SEROQUEL [Concomitant]
  3. LAMICTAL [Concomitant]
  4. MELIPRAMIN (IMIPRAMINE HYDROCHLORIDE) [Concomitant]

REACTIONS (5)
  - ANXIETY [None]
  - CONDITION AGGRAVATED [None]
  - DELUSION [None]
  - FEAR [None]
  - SCHIZOPHRENIA [None]
